FAERS Safety Report 10757778 (Version 1)
Quarter: 2015Q1

REPORT INFORMATION
  Report Type: Report from Study
  Country: BR (occurrence: BR)
  Receive Date: 20150203
  Receipt Date: 20150203
  Transmission Date: 20150721
  Serious: Yes (Hospitalization)
  Sender: FDA-Public Use
  Company Number: BR-SA-2015SA007574

PATIENT
  Sex: Female
  Weight: 50 kg

DRUGS (2)
  1. CLIKSTAR [Concomitant]
     Active Substance: CLIKSTAR
     Indication: DEVICE THERAPY
     Dates: start: 2014
  2. LANTUS [Suspect]
     Active Substance: INSULIN GLARGINE
     Indication: TYPE 1 DIABETES MELLITUS
     Route: 058
     Dates: start: 2014

REACTIONS (3)
  - Urinary tract infection [Recovering/Resolving]
  - Pain [Recovering/Resolving]
  - Loss of consciousness [Recovering/Resolving]

NARRATIVE: CASE EVENT DATE: 20141226
